FAERS Safety Report 8314139-1 (Version None)
Quarter: 2012Q2

REPORT INFORMATION
  Report Type: 
  Country: None (occurrence: None)
  Receive Date: 20120426
  Receipt Date: 20120417
  Transmission Date: 20120825
  Serious: Yes (Hospitalization)
  Sender: FDA-Public Use
  Company Number: JP-ASTRAZENECA-2012SE05936

PATIENT
  Age: 79 Year
  Sex: Female

DRUGS (4)
  1. POLARAMINE [Concomitant]
     Route: 048
     Dates: start: 20120123
  2. CLARITHROMYCIN [Concomitant]
     Route: 048
     Dates: start: 20120123
  3. THEO-DUR [Concomitant]
     Route: 048
     Dates: start: 20120123
  4. SYMBICORT [Suspect]
     Indication: ASTHMA
     Route: 055
     Dates: start: 20120123

REACTIONS (5)
  - OVERDOSE [None]
  - TREMOR [None]
  - MALAISE [None]
  - PALPITATIONS [None]
  - WRONG TECHNIQUE IN DRUG USAGE PROCESS [None]
